FAERS Safety Report 7681528-8 (Version None)
Quarter: 2011Q3

REPORT INFORMATION
  Report Type: 
  Country: None (occurrence: None)
  Receive Date: 20110812
  Receipt Date: 20110809
  Transmission Date: 20111222
  Serious: Yes (Death)
  Sender: FDA-Public Use
  Company Number: PHHY2011BR71820

PATIENT
  Sex: Female

DRUGS (5)
  1. LEVOTHYROXINE SODIUM [Concomitant]
     Indication: HYPOTHYROIDISM
     Dosage: 112 MCG LEVOTHYROXINE, DAILY
     Route: 048
  2. DIOVAN HCT [Suspect]
     Indication: HYPERTENSION
     Dosage: HALF TABLET OF 160 MG VALSARTAN AND 12.5 MG OF HYDROCHLOROTHIAZIDE, DAILY
     Route: 048
  3. METFORMIN HCL [Concomitant]
     Indication: DIABETES MELLITUS
     Dosage: 850 MG METFORMIN, DAILY
     Route: 048
  4. SPIRONOLACTONE [Concomitant]
     Indication: CARDIAC DISORDER
     Dosage: 25 MG SPIRONOLACTONE
     Route: 048
  5. DIAMICRON MR [Concomitant]
     Indication: DIABETES MELLITUS
     Dosage: 2 TABLETS OF 30 MG GLICLAZIDE, DAILY
     Route: 048

REACTIONS (4)
  - CHEST PAIN [None]
  - WRONG TECHNIQUE IN DRUG USAGE PROCESS [None]
  - SYNCOPE [None]
  - RESPIRATORY FAILURE [None]
